FAERS Safety Report 24617608 (Version 1)
Quarter: 2024Q4

REPORT INFORMATION
  Report Type: Spontaneous
  Country: GB (occurrence: GB)
  Receive Date: 20241114
  Receipt Date: 20241114
  Transmission Date: 20250115
  Serious: Yes (Other)
  Sender: RANBAXY
  Company Number: GB-MHRA-MED-202410300610365440-BVYKC

PATIENT
  Age: 37 Year
  Sex: Female

DRUGS (1)
  1. PREGABALIN [Suspect]
     Active Substance: PREGABALIN
     Indication: Pain
     Dosage: 75MG TWICE A DAY
     Route: 065

REACTIONS (1)
  - Anorgasmia [Not Recovered/Not Resolved]
